FAERS Safety Report 8059588-4 (Version None)
Quarter: 2012Q1

REPORT INFORMATION
  Report Type: 
  Country: None (occurrence: None)
  Receive Date: 20120113
  Receipt Date: 20120109
  Transmission Date: 20120608
  Serious: Yes (Hospitalization)
  Sender: FDA-Public Use
  Company Number: IMP_05562_2012

PATIENT
  Age: 61 Year
  Sex: Male

DRUGS (1)
  1. METFORMIN HCL [Suspect]
     Indication: TYPE 2 DIABETES MELLITUS
     Dosage: (1700 MG QD), (DF ORAL)
     Route: 048

REACTIONS (6)
  - MALAISE [None]
  - CHOLESTASIS [None]
  - JAUNDICE [None]
  - ABDOMINAL DISCOMFORT [None]
  - NAUSEA [None]
  - HEPATOTOXICITY [None]
